FAERS Safety Report 9458747 (Version 1)
Quarter: 2013Q3

REPORT INFORMATION
  Report Type: Not Available
  Country: US (occurrence: US)
  Receive Date: 20130814
  Receipt Date: 20130814
  Transmission Date: 20140515
  Serious: No
  Sender: FDA-Public Use
  Company Number: US-TARO-2012P1060115

PATIENT
  Age: 59 Year
  Sex: Female
  Weight: 50.8 kg

DRUGS (3)
  1. FLUOCINONIDE CREAM USP 0.05% [Suspect]
     Indication: VITILIGO
     Route: 061
     Dates: start: 20120830, end: 20120830
  2. OMEPRAZOLE [Concomitant]
  3. AMITIZA [Concomitant]

REACTIONS (2)
  - Paraesthesia [Recovered/Resolved]
  - Anxiety [Recovered/Resolved]
